FAERS Safety Report 9721234 (Version 2)
Quarter: 2014Q1

REPORT INFORMATION
  Report Type: Spontaneous
  Country: US (occurrence: US)
  Receive Date: 20131129
  Receipt Date: 20140210
  Transmission Date: 20141002
  Serious: No
  Sender: FDA-Public Use
  Company Number: US-PFIZER INC-2013340403

PATIENT
  Age: 53 Year
  Sex: Male

DRUGS (2)
  1. ZOLOFT [Suspect]
     Indication: DEPRESSION
     Dosage: 100 MG, DAILY
  2. LEVOCETIRIZINE [Concomitant]
     Indication: HYPERSENSITIVITY
     Dosage: 5 MG, DAILY

REACTIONS (5)
  - Counterfeit drug administered [Unknown]
  - Poor quality drug administered [Unknown]
  - Tremor [Recovered/Resolved]
  - Vertigo [Recovered/Resolved]
  - Nausea [Recovered/Resolved]
